FAERS Safety Report 8222936-6 (Version None)
Quarter: 2012Q1

REPORT INFORMATION
  Report Type: 
  Country: None (occurrence: None)
  Receive Date: 20120320
  Receipt Date: 20120312
  Transmission Date: 20120608
  Serious: Yes (Hospitalization, Other)
  Sender: FDA-Public Use
  Company Number: PHEH2012US004700

PATIENT
  Sex: Female
  Weight: 58.957 kg

DRUGS (4)
  1. DETROL [Concomitant]
     Indication: URINARY RETENTION
  2. DETROL [Concomitant]
     Indication: BLADDER SPASM
     Dosage: 4 MG, QD
  3. DULCOLAX [Concomitant]
  4. GILENYA [Suspect]
     Indication: MULTIPLE SCLEROSIS RELAPSE
     Dosage: 0.5 MG, QD
     Route: 048
     Dates: start: 20110101

REACTIONS (23)
  - GAZE PALSY [None]
  - HAEMATOCHEZIA [None]
  - DIZZINESS [None]
  - NEUROGENIC BLADDER [None]
  - RECTAL HAEMORRHAGE [None]
  - ANAEMIA [None]
  - BACK PAIN [None]
  - FATIGUE [None]
  - UTERINE LEIOMYOMA [None]
  - HAEMOGLOBIN DECREASED [None]
  - GAIT DISTURBANCE [None]
  - COLON CANCER [None]
  - METASTASES TO LIVER [None]
  - FALL [None]
  - ABDOMINAL PAIN [None]
  - HAEMATOCRIT DECREASED [None]
  - BLOOD IRON DECREASED [None]
  - WHITE BLOOD CELL COUNT DECREASED [None]
  - LOSS OF CONSCIOUSNESS [None]
  - INTESTINAL OBSTRUCTION [None]
  - CONSTIPATION [None]
  - NEUTROPHIL COUNT DECREASED [None]
  - BIOPSY LYMPH GLAND ABNORMAL [None]
